FAERS Safety Report 13725251 (Version 1)
Quarter: 2017Q3

REPORT INFORMATION
  Report Type: Other
  Country: None (occurrence: US)
  Receive Date: 20170706
  Receipt Date: 20170706
  Transmission Date: 20171127
  Serious: Yes (Other)
  Sender: FDA-Public Use
  Company Number: US-GUTHY-RENKER LLC-2023028

PATIENT
  Sex: Female

DRUGS (4)
  1. VITAMIN B AND D, BENADRYL AS NEEDED [Concomitant]
  2. PROACTIVPLUS SKIN SMOOTHING EXFOLIATOR [Suspect]
     Active Substance: BENZOYL PEROXIDE
     Indication: ACNE
     Route: 061
     Dates: start: 20151215
  3. PROACTIV PLUS COMPLEXION PERFECTING HYDRATOR [Suspect]
     Active Substance: SALICYLIC ACID
     Route: 061
     Dates: start: 20151215
  4. PROACTIV PLUS PORE TARGETING TREATMENT [Suspect]
     Active Substance: BENZOYL PEROXIDE
     Route: 061
     Dates: start: 20151215

REACTIONS (5)
  - Pruritus [None]
  - Eye swelling [None]
  - Urticaria [Recovered/Resolved]
  - Hypopnoea [None]
  - Dyspnoea [None]

NARRATIVE: CASE EVENT DATE: 20151215
